FAERS Safety Report 6403664-6 (Version None)
Quarter: 2009Q4

REPORT INFORMATION
  Report Type: 
  Country: None (occurrence: None)
  Receive Date: 20091016
  Receipt Date: 20091006
  Transmission Date: 20100525
  Serious: Yes (Other)
  Sender: FDA-Public Use
  Company Number: US-BAYER-200935580NA

PATIENT
  Age: 41 Year
  Sex: Female
  Weight: 76 kg

DRUGS (3)
  1. MAGNEVIST [Suspect]
     Indication: NUCLEAR MAGNETIC RESONANCE IMAGING
     Dosage: TOTAL DAILY DOSE: 15 ML  UNIT DOSE: 50 ML
     Route: 042
     Dates: start: 20091006, end: 20091006
  2. KEPPRA [Concomitant]
  3. DIAZEPAM [Concomitant]
     Dates: start: 20091006

REACTIONS (3)
  - CONVULSION [None]
  - SNEEZING [None]
  - URTICARIA [None]
